FAERS Safety Report 5913842-8 (Version None)
Quarter: 2008Q4

REPORT INFORMATION
  Report Type: 
  Country: None (occurrence: None)
  Receive Date: 20081009
  Receipt Date: 20081001
  Transmission Date: 20090506
  Serious: Yes (Hospitalization)
  Sender: FDA-Public Use
  Company Number: A0749952A

PATIENT
  Age: 65 Year
  Sex: Female
  Weight: 82.2 kg

DRUGS (5)
  1. TOPOTECAN [Suspect]
     Indication: OVARIAN CANCER RECURRENT
     Dosage: 4MGM2 CYCLIC
     Route: 042
     Dates: start: 20061002, end: 20080902
  2. BEVACIZUMAB [Suspect]
     Indication: OVARIAN CANCER RECURRENT
     Dosage: 10MGK CYCLIC
     Route: 042
     Dates: start: 20061002, end: 20080902
  3. NORVASC [Concomitant]
     Indication: HYPERTENSION
     Dosage: 5MG PER DAY
     Route: 048
     Dates: start: 20071217
  4. ATENOLOL [Concomitant]
     Indication: HYPERTENSION
     Dosage: 25MG PER DAY
     Route: 048
     Dates: start: 20071029
  5. LEVOTHYROXINE SODIUM [Concomitant]
     Indication: HYPOTHYROIDISM
     Dosage: .088MG PER DAY
     Route: 048
     Dates: start: 20071029

REACTIONS (6)
  - CHEST PAIN [None]
  - CORONARY ARTERY STENOSIS [None]
  - HAEMORRHAGE [None]
  - HAEMORRHAGIC ANAEMIA [None]
  - HYPERHIDROSIS [None]
  - PROCEDURAL COMPLICATION [None]
